FAERS Safety Report 8003377-3 (Version None)
Quarter: 2011Q4

REPORT INFORMATION
  Report Type: 
  Country: None (occurrence: None)
  Receive Date: 20111222
  Receipt Date: 20111214
  Transmission Date: 20120403
  Serious: Yes (Other)
  Sender: FDA-Public Use
  Company Number: PHHO2010CA04746

PATIENT
  Sex: Female
  Weight: 79.8 kg

DRUGS (1)
  1. GILENYA [Suspect]
     Indication: MULTIPLE SCLEROSIS
     Dosage: 0.5 MG, UNK
     Route: 048
     Dates: start: 20090303, end: 20100325

REACTIONS (2)
  - BASAL CELL CARCINOMA [None]
  - ERYTHEMA [None]
